FAERS Safety Report 13940239 (Version 1)
Quarter: 2017Q3

REPORT INFORMATION
  Report Type: Spontaneous
  Country: US (occurrence: None)
  Receive Date: 20170906
  Receipt Date: 20170906
  Transmission Date: 20171127
  Serious: Yes (Other)
  Sender: FDA-Public Use
  Company Number: None

PATIENT
  Age: 69 Year
  Sex: Female
  Weight: 62.14 kg

DRUGS (2)
  1. EVOLOCUMAB 140MG Q2 WKS [Suspect]
     Active Substance: EVOLOCUMAB
     Route: 058
     Dates: start: 20161006, end: 20170112
  2. ALIROCUMAB 150MG Q2 WKS [Suspect]
     Active Substance: ALIROCUMAB
     Route: 058
     Dates: start: 20170511, end: 20170701

REACTIONS (1)
  - Visual impairment [None]

NARRATIVE: CASE EVENT DATE: 20170112
